FAERS Safety Report 23160234 (Version 1)
Quarter: 2023Q4

REPORT INFORMATION
  Report Type: Spontaneous
  Country: NL (occurrence: None)
  Receive Date: 20231108
  Receipt Date: 20231108
  Transmission Date: 20240109
  Serious: Yes (Death, Hospitalization, Other)
  Sender: FDA-Public Use
  Company Number: 2023A249620

PATIENT
  Age: 71 Year
  Sex: Male
  Weight: 112 kg

DRUGS (1)
  1. ROSUVASTATIN [Suspect]
     Active Substance: ROSUVASTATIN
     Indication: Disease risk factor
     Dosage: 40 MILLIGRAM, 1/DAY
     Dates: start: 20221001, end: 20230911

REACTIONS (1)
  - Rhabdomyolysis [Fatal]
